FAERS Safety Report 10177007 (Version 1)
Quarter: 2014Q2

REPORT INFORMATION
  Report Type: Spontaneous
  Country: US (occurrence: None)
  Receive Date: 20140515
  Receipt Date: 20140515
  Transmission Date: 20141212
  Serious: Yes (Hospitalization)
  Sender: FDA-Public Use
  Company Number: None

PATIENT
  Age: 67 Year
  Sex: Female
  Weight: 58.6 kg

DRUGS (7)
  1. CYCLOPHOSPHAMIDE [Suspect]
  2. DOXORUBICIN HYDROCHLORIDE [Suspect]
  3. ETOPOSIDE (VP-16) [Suspect]
  4. METHOTREXATE [Suspect]
  5. PREDNISONE [Suspect]
  6. RITUXIMAB (MOAB C2B8 ANTI CD20, CHIMERIC) [Suspect]
  7. VINCRISTINE SULFATE [Suspect]

REACTIONS (7)
  - Malaise [None]
  - Vomiting [None]
  - Abdominal pain [None]
  - Neutropenia [None]
  - Body temperature increased [None]
  - Clostridium difficile infection [None]
  - Atrial fibrillation [None]
